FAERS Safety Report 24841508 (Version 1)
Quarter: 2025Q1

REPORT INFORMATION
  Report Type: Spontaneous
  Country: US (occurrence: None)
  Receive Date: 20250114
  Receipt Date: 20250114
  Transmission Date: 20250409
  Serious: No
  Sender: FDA-CTU
  Company Number: None

PATIENT
  Age: 77 Year
  Sex: Male
  Weight: 51 kg

DRUGS (4)
  1. LISINOPRIL [Suspect]
     Active Substance: LISINOPRIL
     Indication: Hypertension
     Dosage: FREQUENCY : DAILY;?
     Route: 048
  2. INFLUENZA VIRUS VACCINE [Suspect]
     Active Substance: INFLUENZA VIRUS VACCINE
  3. MAGNESIUM [Suspect]
     Active Substance: MAGNESIUM
  4. GLIPIZIDE [Suspect]
     Active Substance: GLIPIZIDE

REACTIONS (9)
  - Angioedema [None]
  - Rash [None]
  - Immunisation reaction [None]
  - Urticaria [None]
  - Swelling face [None]
  - Erythema [None]
  - Peripheral swelling [None]
  - Pharyngeal swelling [None]
  - Therapy cessation [None]

NARRATIVE: CASE EVENT DATE: 20241023
